FAERS Safety Report 15029518 (Version 1)
Quarter: 2018Q2

REPORT INFORMATION
  Report Type: Spontaneous
  Country: FR (occurrence: FR)
  Receive Date: 20180619
  Receipt Date: 20180619
  Transmission Date: 20180711
  Serious: Yes (Other)
  Sender: FDA-Public Use
  Company Number: PHHY2018FR024771

PATIENT
  Age: 71 Year
  Sex: Male
  Weight: 102 kg

DRUGS (9)
  1. INDAPAMIDE. [Suspect]
     Active Substance: INDAPAMIDE
     Indication: HYPERTENSION
     Route: 048
  2. RAMIPRIL. [Suspect]
     Active Substance: RAMIPRIL
     Indication: HYPERTENSION
     Route: 048
  3. CORGARD [Concomitant]
     Active Substance: NADOLOL
     Indication: PRODUCT USED FOR UNKNOWN INDICATION
     Route: 065
  4. KARDEGIC [Concomitant]
     Active Substance: ASPIRIN DL-LYSINE
     Indication: PRODUCT USED FOR UNKNOWN INDICATION
     Route: 065
  5. LERCAN [Concomitant]
     Active Substance: LERCANIDIPINE
     Indication: PRODUCT USED FOR UNKNOWN INDICATION
     Route: 065
  6. VICTOZA [Concomitant]
     Active Substance: LIRAGLUTIDE
     Indication: PRODUCT USED FOR UNKNOWN INDICATION
     Route: 065
  7. LANTUS [Concomitant]
     Active Substance: INSULIN GLARGINE
     Indication: PRODUCT USED FOR UNKNOWN INDICATION
     Route: 065
  8. METFORMIN [Suspect]
     Active Substance: METFORMIN HYDROCHLORIDE
     Indication: DIABETES MELLITUS
     Route: 048
  9. AMOXICILLIN CLAVULANIC ACID SANDOZ [Suspect]
     Active Substance: AMOXICILLIN\CLAVULANIC ACID
     Indication: ERYSIPELAS
     Dosage: 3 DF, QD
     Route: 048
     Dates: start: 20180226, end: 20180310

REACTIONS (3)
  - Diarrhoea [Recovered/Resolved]
  - Acute kidney injury [Recovered/Resolved]
  - Rash maculo-papular [Recovered/Resolved]

NARRATIVE: CASE EVENT DATE: 20180305
